FAERS Safety Report 8653813 (Version 4)
Quarter: 2013Q1

REPORT INFORMATION
  Report Type: Spontaneous
  Country: US (occurrence: US)
  Receive Date: 20120709
  Receipt Date: 20130228
  Transmission Date: 20140127
  Serious: Yes (Other)
  Sender: FDA-Public Use
  Company Number: US-JNJFOC-20120609346

PATIENT
  Age: 61 Year
  Sex: Female
  Weight: 64.41 kg

DRUGS (6)
  1. ZYRTEC IR [Suspect]
     Route: 048
  2. ZYRTEC IR [Suspect]
     Indication: ASTHMA
     Route: 048
     Dates: start: 20120417, end: 20120611
  3. PRO AIR [Concomitant]
     Indication: ASTHMA
     Dosage: 2 PUFFS AS NEEDED
     Route: 065
     Dates: start: 20120417
  4. LISINOPRIL [Concomitant]
     Indication: HYPERTENSION
     Dosage: STARTED YEARS AGO
     Route: 065
  5. SYMBICORT [Concomitant]
     Indication: ASTHMA
     Route: 065
     Dates: start: 20120417
  6. ALEVE [Concomitant]
     Indication: PAIN
     Dosage: AS NEEDED WEEKS AGO
     Route: 065

REACTIONS (7)
  - Loss of consciousness [Recovered/Resolved]
  - Pain in extremity [Not Recovered/Not Resolved]
  - Muscle spasms [Not Recovered/Not Resolved]
  - Off label use [Unknown]
  - Hyperhidrosis [Not Recovered/Not Resolved]
  - Constipation [Not Recovered/Not Resolved]
  - Nausea [Not Recovered/Not Resolved]
